FAERS Safety Report 5207963-5 (Version None)
Quarter: 2007Q1

REPORT INFORMATION
  Report Type: 
  Country: None (occurrence: None)
  Receive Date: 20070115
  Receipt Date: 20070110
  Transmission Date: 20070707
  Serious: Yes (Hospitalization)
  Sender: FDA-Public Use
  Company Number: US-ELI_LILLY_AND_COMPANY-US200609003631

PATIENT
  Age: 37 Year
  Sex: Female
  Weight: 96.598 kg

DRUGS (6)
  1. ZYPREXA [Suspect]
     Dosage: 10 MG, UNK
     Dates: start: 19950101
  2. ZYPREXA [Suspect]
     Dosage: 20 MG, UNK
  3. RISPERIDONE [Concomitant]
     Dates: start: 19950101
  4. CHLORPROMAZINE [Concomitant]
     Dates: start: 19950101
  5. ANTIDEPRESSANTS [Concomitant]
     Dates: start: 19950101
  6. FLUOXETINE                              /N/A/ [Concomitant]
     Dates: start: 19950101

REACTIONS (3)
  - DIABETES MELLITUS [None]
  - EMOTIONAL DISORDER [None]
  - MENTAL DISORDER [None]
